FAERS Safety Report 8740571 (Version 2)
Quarter: 2012Q4

REPORT INFORMATION
  Report Type: 
  Country: US (occurrence: US)
  Receive Date: 20120823
  Receipt Date: 20121002
  Transmission Date: 20130627
  Serious: No
  Sender: FDA-Public Use
  Company Number: US-009507513-1208USA007926

PATIENT
  Age: 49 Year
  Sex: Female
  Weight: 77.55 kg

DRUGS (2)
  1. PEGINTRON [Suspect]
     Dosage: 80 Microgram, qw
     Route: 058
  2. OMEPRAZOLE [Concomitant]
     Dosage: 40 mg, UNK
     Route: 048

REACTIONS (2)
  - Pain [Unknown]
  - Headache [Unknown]
